FAERS Safety Report 11336204 (Version 1)
Quarter: 2015Q3

REPORT INFORMATION
  Report Type: Spontaneous
  Country: US (occurrence: None)
  Receive Date: 20150731
  Receipt Date: 20150731
  Transmission Date: 20151125
  Serious: No
  Sender: FDA-Public Use
  Company Number: None

PATIENT
  Age: 65 Year
  Sex: Male
  Weight: 90 kg

DRUGS (1)
  1. VANCOMYCIN [Suspect]
     Active Substance: VANCOMYCIN
     Route: 042
     Dates: start: 20130503, end: 20130506

REACTIONS (4)
  - Tachypnoea [None]
  - Anaphylactic reaction [None]
  - Stridor [None]
  - Hypertension [None]

NARRATIVE: CASE EVENT DATE: 20130505
